FAERS Safety Report 10076788 (Version 1)
Quarter: 2014Q2

REPORT INFORMATION
  Report Type: Spontaneous
  Country: US (occurrence: US)
  Receive Date: 20140414
  Receipt Date: 20140414
  Transmission Date: 20141212
  Serious: Yes (Other)
  Sender: FDA-Public Use
  Company Number: US-PFIZER INC-2014101726

PATIENT
  Age: 53 Year
  Sex: Female
  Weight: 60.32 kg

DRUGS (1)
  1. PREMARIN [Suspect]
     Indication: HORMONE REPLACEMENT THERAPY
     Dosage: 0.065 MG, DAILY
     Route: 048
     Dates: start: 1987

REACTIONS (1)
  - Polyneuropathy [Not Recovered/Not Resolved]
